FAERS Safety Report 22121632 (Version 1)
Quarter: 2023Q1

REPORT INFORMATION
  Report Type: Spontaneous
  Country: RU (occurrence: None)
  Receive Date: 20230321
  Receipt Date: 20230321
  Transmission Date: 20230418
  Serious: Yes (Hospitalization)
  Sender: FDA-Public Use
  Company Number: 2023A065694

PATIENT
  Age: 51 Year
  Sex: Male
  Weight: 115 kg

DRUGS (5)
  1. BRILINTA [Suspect]
     Active Substance: TICAGRELOR
     Indication: Coronary angioplasty
     Route: 048
     Dates: start: 20210922, end: 20221013
  2. ASPIRIN [Concomitant]
     Active Substance: ASPIRIN
     Indication: Coronary artery disease
     Dates: start: 20210922
  3. BISOPROLOL [Concomitant]
     Active Substance: BISOPROLOL
     Indication: Coronary artery disease
     Dates: start: 20211005
  4. FOSINOPRIL [Concomitant]
     Active Substance: FOSINOPRIL
     Indication: Coronary artery disease
     Dates: start: 20211005
  5. ATORVASTATIN [Concomitant]
     Active Substance: ATORVASTATIN
     Indication: Coronary artery disease
     Dates: start: 20211005

REACTIONS (1)
  - Vascular stent thrombosis [Recovering/Resolving]
